FAERS Safety Report 22066146 (Version 1)
Quarter: 2023Q1

REPORT INFORMATION
  Report Type: Spontaneous
  Country: US (occurrence: None)
  Receive Date: 20230306
  Receipt Date: 20230306
  Transmission Date: 20230417
  Serious: Yes (Hospitalization)
  Sender: FDA-Public Use
  Company Number: None

PATIENT
  Age: 51 Year
  Sex: Male
  Weight: 92.25 kg

DRUGS (18)
  1. PAXLOVID [Suspect]
     Active Substance: NIRMATRELVIR\RITONAVIR
     Indication: COVID-19
     Dates: start: 20230208, end: 20230214
  2. Insulin infusion pump [Concomitant]
  3. NOVOLOG [Concomitant]
     Active Substance: INSULIN ASPART
  4. CIALIS [Concomitant]
     Active Substance: TADALAFIL
  5. COREG [Concomitant]
     Active Substance: CARVEDILOL
  6. AMIODARONE [Concomitant]
     Active Substance: AMIODARONE
  7. ENTRESTO [Concomitant]
     Active Substance: SACUBITRIL\VALSARTAN
  8. ELIQUIS [Concomitant]
     Active Substance: APIXABAN
  9. toresimide [Concomitant]
  10. ATORVASTATIN [Concomitant]
     Active Substance: ATORVASTATIN
  11. PRISTIQ EXTENDED-RELEASE [Concomitant]
     Active Substance: DESVENLAFAXINE SUCCINATE
  12. ARMODAFINIL [Concomitant]
     Active Substance: ARMODAFINIL
  13. SPIRONOLACTONE [Concomitant]
     Active Substance: SPIRONOLACTONE
  14. METAMUCIL [Concomitant]
     Active Substance: PLANTAGO SEED
  15. MIRALAX [Concomitant]
     Active Substance: POLYETHYLENE GLYCOL 3350
  16. LEVOMEFOLIC ACID [Concomitant]
     Active Substance: LEVOMEFOLIC ACID
  17. vitamen C [Concomitant]
  18. VITAMIN D3 [Concomitant]
     Active Substance: CHOLECALCIFEROL

REACTIONS (5)
  - Diplopia [None]
  - Impaired driving ability [None]
  - Fall [None]
  - Balance disorder [None]
  - Vertigo positional [None]

NARRATIVE: CASE EVENT DATE: 20230221
